FAERS Safety Report 6838899-1 (Version None)
Quarter: 2010Q3

REPORT INFORMATION
  Report Type: 
  Country: None (occurrence: None)
  Receive Date: 20100708
  Receipt Date: 20100630
  Transmission Date: 20110219
  Serious: Yes (Other)
  Sender: FDA-Public Use
  Company Number: UTKAB-10-0325

PATIENT
  Age: 51 Year
  Sex: Female
  Weight: 62.7 kg

DRUGS (2)
  1. ABRAXANE [Suspect]
     Indication: BREAST CANCER
     Dosage: (298 MG), INTRAVENOUS
     Route: 042
     Dates: start: 20100608
  2. DEXAMETHASONE [Concomitant]

REACTIONS (3)
  - BACK PAIN [None]
  - DYSPNOEA [None]
  - ERYTHEMA [None]
